FAERS Safety Report 16804247 (Version 1)
Quarter: 2019Q3

REPORT INFORMATION
  Report Type: Spontaneous
  Country: LT (occurrence: LT)
  Receive Date: 20190913
  Receipt Date: 20190913
  Transmission Date: 20191005
  Serious: Yes (Hospitalization)
  Sender: FDA-Public Use
  Company Number: LT-ACCORD-154908

PATIENT
  Age: 2 Year
  Sex: Female
  Weight: 12 kg

DRUGS (1)
  1. METHOTREXAT ACCORD [Suspect]
     Active Substance: METHOTREXATE
     Indication: ACUTE LEUKAEMIA
     Dosage: STRENGTH: 100 MG/ML
     Route: 042
     Dates: start: 20190807, end: 20190808

REACTIONS (5)
  - Erythema [Recovering/Resolving]
  - Rash pruritic [Recovering/Resolving]
  - Rash [Unknown]
  - Vomiting [Recovering/Resolving]
  - Off label use [Unknown]

NARRATIVE: CASE EVENT DATE: 20190813
